FAERS Safety Report 6779073-7 (Version None)
Quarter: 2010Q2

REPORT INFORMATION
  Report Type: 
  Country: None (occurrence: None)
  Receive Date: 20100618
  Receipt Date: 20100607
  Transmission Date: 20101027
  Serious: Yes (Other)
  Sender: FDA-Public Use
  Company Number: JP-PFIZER INC-2010070661

PATIENT
  Age: 59 Year
  Sex: Female

DRUGS (3)
  1. SOLANAX [Suspect]
     Dosage: UNK
  2. ABILIT [Suspect]
     Dosage: UNK
  3. NEOSTIGMINE [Concomitant]
     Dosage: UNK

REACTIONS (9)
  - ANAEMIA [None]
  - ASTHENOPIA [None]
  - EMOTIONAL DISTRESS [None]
  - HEADACHE [None]
  - HYPOTENSION [None]
  - PERIODONTITIS [None]
  - STOMATITIS [None]
  - TERMINAL INSOMNIA [None]
  - WHITE BLOOD CELL COUNT INCREASED [None]
